FAERS Safety Report 23909388 (Version 1)
Quarter: 2024Q2

REPORT INFORMATION
  Report Type: Spontaneous
  Country: AU (occurrence: None)
  Receive Date: 20240525
  Receipt Date: 20240525
  Transmission Date: 20240716
  Serious: Yes (Disabling)
  Sender: FDA-Public Use
  Company Number: None

PATIENT
  Age: 69 Year
  Sex: Male
  Weight: 110 kg

DRUGS (5)
  1. LEQVIO [Suspect]
     Active Substance: INCLISIRAN SODIUM
     Indication: Blood cholesterol increased
     Dosage: OTHER QUANTITY : 1 INJECTION(S);?OTHER FREQUENCY : EVERY 3 MONTHS;?
     Route: 058
     Dates: start: 20231010, end: 20240410
  2. AZATHIOPRINE [Concomitant]
     Active Substance: AZATHIOPRINE
  3. PRADAXA [Concomitant]
     Active Substance: DABIGATRAN ETEXILATE MESYLATE
  4. EZETIMIBE [Concomitant]
     Active Substance: EZETIMIBE
  5. VITAMIN D [Concomitant]
     Active Substance: VITAMIN D NOS

REACTIONS (4)
  - Arthralgia [None]
  - Insomnia [None]
  - Mobility decreased [None]
  - Quality of life decreased [None]

NARRATIVE: CASE EVENT DATE: 20240520
